FAERS Safety Report 17266664 (Version 2)
Quarter: 2020Q1

REPORT INFORMATION
  Report Type: Spontaneous
  Country: US (occurrence: US)
  Receive Date: 20200114
  Receipt Date: 20200123
  Transmission Date: 20200409
  Serious: No
  Sender: FDA-Public Use
  Company Number: US-UNITED THERAPEUTICS-UNT-2020-000325

PATIENT
  Sex: Male
  Weight: 78.5 kg

DRUGS (2)
  1. ADCIRCA [Concomitant]
     Active Substance: TADALAFIL
     Indication: PULMONARY ARTERIAL HYPERTENSION
     Dosage: UNK
     Route: 065
  2. REMODULIN [Suspect]
     Active Substance: TREPROSTINIL
     Indication: PULMONARY ARTERIAL HYPERTENSION
     Dosage: 0.130 ?G/KG, CONTINUING
     Route: 041
     Dates: start: 20181106

REACTIONS (7)
  - Headache [Unknown]
  - Chills [Unknown]
  - Device use error [Unknown]
  - Dyspnoea exertional [Recovering/Resolving]
  - Diarrhoea [Unknown]
  - Flushing [Unknown]
  - Sluggishness [Unknown]
